FAERS Safety Report 9266777 (Version 1)
Quarter: 2013Q2

REPORT INFORMATION
  Report Type: Spontaneous
  Country: DE (occurrence: DE)
  Receive Date: 20130502
  Receipt Date: 20130502
  Transmission Date: 20140414
  Serious: Yes (Death)
  Sender: FDA-Public Use
  Company Number: DE-BAYER-2013-054138

PATIENT
  Age: 81 Year
  Sex: Male
  Weight: 85 kg

DRUGS (1)
  1. AVALOX [Suspect]
     Indication: PNEUMONIA
     Dosage: 400 MG, UNK
     Route: 042

REACTIONS (1)
  - Electrocardiogram QT prolonged [Fatal]
